FAERS Safety Report 14582240 (Version 1)
Quarter: 2018Q1

REPORT INFORMATION
  Report Type: Spontaneous
  Country: KW (occurrence: KW)
  Receive Date: 20180228
  Receipt Date: 20180228
  Transmission Date: 20180509
  Serious: Yes (Hospitalization, Other)
  Sender: FDA-Public Use
  Company Number: KW-IPSEN BIOPHARMACEUTICALS, INC.-2018-02952

PATIENT
  Age: 28 Year
  Sex: Female

DRUGS (1)
  1. SOMATULINE [Suspect]
     Active Substance: LANREOTIDE ACETATE
     Indication: ACROMEGALY
     Dosage: 120 MG
     Route: 065

REACTIONS (5)
  - Septic shock [Recovering/Resolving]
  - Gallbladder enlargement [Recovering/Resolving]
  - Cholelithiasis [Recovering/Resolving]
  - Pancreatitis acute [Recovering/Resolving]
  - Biliary dilatation [Recovering/Resolving]
